FAERS Safety Report 6714898-5 (Version None)
Quarter: 2010Q2

REPORT INFORMATION
  Report Type: 
  Country: None (occurrence: None)
  Receive Date: 20100506
  Receipt Date: 20100506
  Transmission Date: 20101027
  Serious: Yes (Other)
  Sender: FDA-Public Use
  Company Number: None

PATIENT
  Age: 2 Year
  Sex: Female
  Weight: 10.8863 kg

DRUGS (1)
  1. CHILDREN'S TYLENOL (DYE FREE) [Suspect]
     Indication: APPLICATION SITE IRRITATION
     Dosage: .8 ML EVERY 4 HOURS OTHER
     Route: 050
     Dates: start: 20100502, end: 20100504

REACTIONS (1)
  - DIARRHOEA [None]
